FAERS Safety Report 7911847-9 (Version None)
Quarter: 2011Q4

REPORT INFORMATION
  Report Type: 
  Country: None (occurrence: None)
  Receive Date: 20111114
  Receipt Date: 20111031
  Transmission Date: 20120403
  Serious: Yes (Other)
  Sender: FDA-Public Use
  Company Number: US-JNJFOC-20111101709

PATIENT
  Sex: Female
  Weight: 58.97 kg

DRUGS (4)
  1. TRAMADOL HCL [Suspect]
     Route: 048
     Dates: start: 20110801, end: 20110801
  2. TRAMADOL HCL [Suspect]
     Indication: INJURY
     Route: 048
     Dates: start: 20110927, end: 20111001
  3. NUCYNTA [Suspect]
     Indication: INJURY
     Route: 048
     Dates: start: 20110801, end: 20110801
  4. NUCYNTA [Suspect]
     Route: 048
     Dates: start: 20110923, end: 20110924

REACTIONS (9)
  - TREATMENT NONCOMPLIANCE [None]
  - DYSPHAGIA [None]
  - WRONG TECHNIQUE IN DRUG USAGE PROCESS [None]
  - FALL [None]
  - DIZZINESS [None]
  - FIBROMYALGIA [None]
  - INSOMNIA [None]
  - CHILLS [None]
  - NAUSEA [None]
